FAERS Safety Report 9742522 (Version 1)
Quarter: 2013Q4

REPORT INFORMATION
  Report Type: Spontaneous
  Country: US (occurrence: US)
  Receive Date: 20131210
  Receipt Date: 20131210
  Transmission Date: 20140711
  Serious: Yes (Hospitalization, Other)
  Sender: FDA-Public Use
  Company Number: US-SA-2013SA128067

PATIENT
  Age: 47 Year
  Sex: Male

DRUGS (3)
  1. LANTUS SOLOSTAR [Suspect]
     Indication: TYPE 2 DIABETES MELLITUS
     Dosage: DOSE:60 UNIT(S)
     Route: 058
     Dates: start: 201310
  2. SOLOSTAR [Concomitant]
     Indication: TYPE 2 DIABETES MELLITUS
     Dates: start: 201310
  3. NOVOLOG [Concomitant]

REACTIONS (3)
  - Gastrointestinal disorder [Not Recovered/Not Resolved]
  - Visual impairment [Unknown]
  - Hyperglycaemia [Unknown]
